FAERS Safety Report 8982567 (Version 1)
Quarter: 2012Q4

REPORT INFORMATION
  Report Type: 
  Country: US (occurrence: US)
  Receive Date: 20121212
  Receipt Date: 20121212
  Transmission Date: 20130627
  Serious: Yes (Death)
  Sender: FDA-Public Use
  Company Number: US-ASTELLAS-1111277

PATIENT
  Sex: Male

DRUGS (3)
  1. TARCEVA [Suspect]
     Indication: LUNG NEOPLASM MALIGNANT
     Route: 048
     Dates: start: 20051203, end: 20071201
  2. TARCEVA [Suspect]
     Indication: TRACHEAL CANCER
  3. TARCEVA [Suspect]
     Indication: BRONCHIAL CARCINOMA

REACTIONS (2)
  - Lung neoplasm malignant [Fatal]
  - Rash [Unknown]
